FAERS Safety Report 11857622 (Version 1)
Quarter: 2015Q4

REPORT INFORMATION
  Report Type: Spontaneous
  Country: US (occurrence: None)
  Receive Date: 20151221
  Receipt Date: 20151221
  Transmission Date: 20160305
  Serious: Yes (Hospitalization)
  Sender: FDA-Public Use
  Company Number: None

PATIENT
  Age: 81 Year
  Sex: Male
  Weight: 64.2 kg

DRUGS (1)
  1. ASPIRIN. [Suspect]
     Active Substance: ASPIRIN
     Indication: ROUTINE HEALTH MAINTENANCE
     Route: 048
     Dates: start: 19980319, end: 20150909

REACTIONS (9)
  - Headache [None]
  - Pain in extremity [None]
  - Fall [None]
  - Head injury [None]
  - Hypoaesthesia [None]
  - Haemorrhage intracranial [None]
  - Dysarthria [None]
  - Subdural haematoma [None]
  - VIIth nerve paralysis [None]

NARRATIVE: CASE EVENT DATE: 20150909
